FAERS Safety Report 14610034 (Version 1)
Quarter: 2018Q1

REPORT INFORMATION
  Report Type: Spontaneous
  Country: US (occurrence: US)
  Receive Date: 20180307
  Receipt Date: 20180307
  Transmission Date: 20180509
  Serious: Yes (Other)
  Sender: FDA-Public Use
  Company Number: None

PATIENT
  Age: 47 Year
  Sex: Male
  Weight: 138.8 kg

DRUGS (1)
  1. OXALIPLATIN 100 MG TEVA [Suspect]
     Active Substance: OXALIPLATIN
     Indication: MALIGNANT SPLENIC NEOPLASM
     Route: 042
     Dates: start: 20170914, end: 20180215

REACTIONS (3)
  - Pruritus [None]
  - Bronchospasm [None]
  - Flushing [None]

NARRATIVE: CASE EVENT DATE: 20180215
